FAERS Safety Report 9387094 (Version 1)
Quarter: 2013Q3

REPORT INFORMATION
  Report Type: Spontaneous
  Country: DK (occurrence: DK)
  Receive Date: 20130708
  Receipt Date: 20130708
  Transmission Date: 20140515
  Serious: Yes (Life-Threatening, Hospitalization)
  Sender: FDA-Public Use
  Company Number: PHHY2013DK018175

PATIENT
  Age: 15 Year
  Sex: Female

DRUGS (1)
  1. MALONETTA [Suspect]
     Indication: PROPHYLAXIS
     Dosage: 1 DF DAILY DOSE
     Route: 048
     Dates: start: 20120522, end: 20121113

REACTIONS (3)
  - Cor pulmonale acute [Recovered/Resolved]
  - Pulmonary embolism [Recovered/Resolved]
  - Dyspnoea [Recovered/Resolved]
